FAERS Safety Report 13953857 (Version 1)
Quarter: 2017Q3

REPORT INFORMATION
  Report Type: Spontaneous
  Country: US (occurrence: US)
  Receive Date: 20170911
  Receipt Date: 20170911
  Transmission Date: 20171128
  Serious: No
  Sender: FDA-Public Use
  Company Number: US-TEVA-721666USA

PATIENT
  Age: 69 Year
  Sex: Male

DRUGS (1)
  1. VENLAFAXINE [Suspect]
     Active Substance: VENLAFAXINE HYDROCHLORIDE
     Route: 065

REACTIONS (8)
  - Abdominal pain upper [Unknown]
  - Feeling hot [Unknown]
  - Restlessness [Unknown]
  - Feeling cold [Unknown]
  - Anxiety [Unknown]
  - Hyperhidrosis [Unknown]
  - Nervousness [Unknown]
  - Drug withdrawal syndrome [Unknown]
